FAERS Safety Report 6286199-3 (Version None)
Quarter: 2009Q3

REPORT INFORMATION
  Report Type: 
  Country: None (occurrence: None)
  Receive Date: 20090728
  Receipt Date: 20090717
  Transmission Date: 20100115
  Serious: Yes (Hospitalization)
  Sender: FDA-Public Use
  Company Number: AU-NOVOPROD-289530

PATIENT
  Age: 47 Year
  Sex: Female
  Weight: 94 kg

DRUGS (1)
  1. NOVOMIX 30 [Suspect]
     Indication: DRUG USE FOR UNKNOWN INDICATION
     Dosage: 6 UNITS IN THE MORNING AND 6 UNITS AT EVENING
     Route: 058

REACTIONS (7)
  - BLOOD PRESSURE INCREASED [None]
  - EPISTAXIS [None]
  - EYE SWELLING [None]
  - HEADACHE [None]
  - RHINORRHOEA [None]
  - SINUSITIS [None]
  - SNEEZING [None]
